FAERS Safety Report 6173131-6 (Version None)
Quarter: 2009Q2

REPORT INFORMATION
  Report Type: 
  Country: None (occurrence: None)
  Receive Date: 20090430
  Receipt Date: 20090422
  Transmission Date: 20091009
  Serious: Yes (Hospitalization, Other)
  Sender: FDA-Public Use
  Company Number: DE-PFIZER INC-2008092010

PATIENT

DRUGS (6)
  1. LYRICA [Suspect]
     Indication: GENERALISED ANXIETY DISORDER
     Dosage: 200 MG, 1X/DAY
     Route: 048
     Dates: start: 20080301
  2. IMIPRAMINE [Concomitant]
     Indication: ANXIETY DISORDER
     Dosage: 10 MG, 1X/DAY
     Route: 048
     Dates: start: 20071001
  3. IMIPRAMINE [Concomitant]
     Indication: DEPRESSION
  4. SEROQUEL [Concomitant]
     Indication: GENERALISED ANXIETY DISORDER
     Dosage: 300 MG, 1X/DAY
     Route: 048
     Dates: start: 20080301
  5. SEROQUEL [Concomitant]
     Indication: SCHIZOID PERSONALITY DISORDER
  6. TRIMIPRAMINE MALEATE [Concomitant]
     Indication: DEPRESSION
     Dosage: 25 MG, 2X/DAY
     Route: 048
     Dates: start: 20071001

REACTIONS (2)
  - CYST [None]
  - WEIGHT INCREASED [None]
